FAERS Safety Report 6639468-9 (Version None)
Quarter: 2010Q1

REPORT INFORMATION
  Report Type: 
  Country: None (occurrence: None)
  Receive Date: 20100318
  Receipt Date: 20100312
  Transmission Date: 20100710
  Serious: Yes (Other)
  Sender: FDA-Public Use
  Company Number: US-RB-004853-10

PATIENT
  Age: 81 Year
  Sex: Male

DRUGS (5)
  1. MUCINEX [Suspect]
     Dosage: TOOK ONE DOSE YESTERDAY AND TWO TODAY
     Route: 048
     Dates: start: 20100310
  2. MUCINEX [Suspect]
     Dosage: TOOK ONE DOSE YESTERDAY AND TWO TODAY
     Route: 048
     Dates: start: 20100310
  3. MUCINEX [Suspect]
     Dosage: TOOK ONE DOSE YESTERDAY AND TWO TODAY
     Route: 048
     Dates: start: 20100310
  4. MUCINEX [Suspect]
     Dosage: TOOK ONE DOSE YESTERDAY AND TWO TODAY
     Route: 048
     Dates: start: 20100310
  5. MUCINEX [Suspect]
     Dosage: TOOK ONE DOSE YESTERDAY AND TWO TODAY
     Route: 048
     Dates: start: 20100310

REACTIONS (3)
  - BRONCHITIS [None]
  - HAEMOPTYSIS [None]
  - OESOPHAGEAL DISORDER [None]
